FAERS Safety Report 7394838-9 (Version None)
Quarter: 2011Q2

REPORT INFORMATION
  Report Type: 
  Country: None (occurrence: None)
  Receive Date: 20110405
  Receipt Date: 20101129
  Transmission Date: 20111010
  Serious: Yes (Hospitalization)
  Sender: FDA-Public Use
  Company Number: A0899067A

PATIENT
  Age: 43 Year
  Sex: Male

DRUGS (1)
  1. AVANDIA [Suspect]
     Route: 048
     Dates: end: 20030101

REACTIONS (4)
  - MYOCARDIAL INFARCTION [None]
  - SOMNOLENCE [None]
  - CORONARY ARTERY BYPASS [None]
  - CARDIAC OPERATION [None]
